FAERS Safety Report 8379055-8 (Version None)
Quarter: 2012Q2

REPORT INFORMATION
  Report Type: 
  Country: None (occurrence: None)
  Receive Date: 20120522
  Receipt Date: 20120522
  Transmission Date: 20120825
  Serious: Yes (Life-Threatening)
  Sender: FDA-Public Use
  Company Number: None

PATIENT
  Sex: Male
  Weight: 66.2252 kg

DRUGS (2)
  1. ERBITUX [Suspect]
     Indication: HEAD AND NECK CANCER
     Dosage: 700MG IV
     Route: 042
  2. ERBITUX [Suspect]

REACTIONS (4)
  - DYSPNOEA [None]
  - SNORING [None]
  - UNRESPONSIVE TO STIMULI [None]
  - PULSE ABSENT [None]
